FAERS Safety Report 11414789 (Version 1)
Quarter: 2015Q3

REPORT INFORMATION
  Report Type: Spontaneous
  Country: KR (occurrence: None)
  Receive Date: 20150821
  Receipt Date: 20150821
  Transmission Date: 20151125
  Serious: Yes (Death, Hospitalization)
  Sender: FDA-Public Use
  Company Number: ABR_02332_2015

PATIENT
  Age: 33 Year
  Sex: Male

DRUGS (3)
  1. VALPROIC ACID (VALPROIC ACID) [Suspect]
     Active Substance: VALPROIC ACID
     Indication: EPILEPSY
     Dosage: (1200 MG, /DAY)
  2. LAMOTRIGINE (LAMOTRIGINE) [Suspect]
     Active Substance: LAMOTRIGINE
     Indication: EPILEPSY
     Dosage: (100 MG, /DAY)?
  3. ARIPIPRAZOLE. [Concomitant]
     Active Substance: ARIPIPRAZOLE

REACTIONS (6)
  - Hepatic failure [None]
  - Erythema multiforme [None]
  - Hepatic encephalopathy [None]
  - Hepatic steatosis [None]
  - Coma [None]
  - Coagulopathy [None]
